FAERS Safety Report 11314301 (Version 2)
Quarter: 2015Q4

REPORT INFORMATION
  Report Type: Spontaneous
  Country: US (occurrence: US)
  Receive Date: 20150727
  Receipt Date: 20151016
  Transmission Date: 20160304
  Serious: Yes (Death, Hospitalization, Other)
  Sender: FDA-Public Use
  Company Number: US-GLAXOSMITHKLINE-US2015GSK106936

PATIENT
  Sex: Male

DRUGS (1)
  1. VENTOLIN HFA [Suspect]
     Active Substance: ALBUTEROL SULFATE
     Indication: OESOPHAGEAL CARCINOMA
     Dosage: 90 UG, UNK

REACTIONS (3)
  - Death [Fatal]
  - Hospitalisation [Unknown]
  - Organ failure [Not Recovered/Not Resolved]
